FAERS Safety Report 18313466 (Version 1)
Quarter: 2020Q3

REPORT INFORMATION
  Report Type: Spontaneous
  Country: FR (occurrence: FR)
  Receive Date: 20200925
  Receipt Date: 20200925
  Transmission Date: 20201103
  Serious: Yes (Hospitalization)
  Sender: FDA-Public Use
  Company Number: FR-CADILA HEALTHCARE LIMITED-FR-ZYDUS-029979

PATIENT

DRUGS (10)
  1. SIFROL [Concomitant]
     Active Substance: PRAMIPEXOLE
     Dosage: 1 DOSAGE FORM,(INTERVAL :1 DAYS)
     Route: 048
     Dates: start: 201712, end: 20180116
  2. SIFROL [Concomitant]
     Active Substance: PRAMIPEXOLE
     Dosage: 2 DOSAGE FORM,(INTERVAL :1 DAYS)
     Route: 048
     Dates: start: 20180116
  3. PROPRANOLOL [Concomitant]
     Active Substance: PROPRANOLOL HYDROCHLORIDE
     Dosage: 40 MILLIGRAM,(INTERVAL :1 DAYS)
     Route: 048
  4. TRAMADOL. [Suspect]
     Active Substance: TRAMADOL
     Indication: POST HERPETIC NEURALGIA
     Dosage: 100 MILLIGRAM,(INTERVAL :1 DAYS)
     Route: 048
     Dates: end: 20180112
  5. TRAMADOL. [Suspect]
     Active Substance: TRAMADOL
     Indication: POST HERPETIC NEURALGIA
     Dosage: 100 MILLIGRAM,(INTERVAL :1 DAYS)
     Route: 048
     Dates: start: 20180112, end: 20180210
  6. PARACETAMOL [Concomitant]
     Active Substance: ACETAMINOPHEN
     Route: 048
  7. PARACETAMOL W/ OPIUM (IZALGI) [Suspect]
     Active Substance: ACETAMINOPHEN\OPIUM
     Indication: POST HERPETIC NEURALGIA
     Dosage: 3 DOSAGE FORM,(INTERVAL :1 DAYS)
     Route: 048
     Dates: start: 20180206, end: 20180210
  8. FLUVASTATIN [Concomitant]
     Active Substance: FLUVASTATIN SODIUM
     Dosage: 1 DOSAGE FORM,(INTERVAL :1 DAYS)
     Route: 048
  9. SIBELIUM [Concomitant]
     Route: 048
     Dates: end: 20180116
  10. ZELITREX [Concomitant]
     Active Substance: VALACYCLOVIR HYDROCHLORIDE
     Route: 048
     Dates: start: 20180112, end: 20180119

REACTIONS (2)
  - General physical health deterioration [Recovered/Resolved]
  - Confusional state [Recovered/Resolved]

NARRATIVE: CASE EVENT DATE: 20180210
